FAERS Safety Report 23267851 (Version 1)
Quarter: 2023Q4

REPORT INFORMATION
  Report Type: Spontaneous
  Country: US (occurrence: None)
  Receive Date: 20231205
  Receipt Date: 20231205
  Transmission Date: 20240110
  Serious: Yes (Disabling)
  Sender: FDA-Public Use
  Company Number: None

PATIENT
  Age: 11 Week
  Sex: Male
  Weight: 81 kg

DRUGS (1)
  1. MONOFERRIC [Suspect]
     Active Substance: FERRIC DERISOMALTOSE
     Indication: Anaemia
     Dates: start: 20230929

REACTIONS (5)
  - Product substitution issue [None]
  - Transfusion [None]
  - Adverse drug reaction [None]
  - Adverse drug reaction [None]
  - Blood iron decreased [None]

NARRATIVE: CASE EVENT DATE: 20230929
